FAERS Safety Report 5230200-2 (Version None)
Quarter: 2007Q1

REPORT INFORMATION
  Report Type: 
  Country: None (occurrence: None)
  Receive Date: 20070206
  Receipt Date: 20060928
  Transmission Date: 20070707
  Serious: No
  Sender: FDA-Public Use
  Company Number: US-GLAXOSMITHKLINE-A0621818A

PATIENT
  Age: 54 Year
  Sex: Male

DRUGS (4)
  1. PAXIL CR [Suspect]
     Indication: DEPRESSION
     Dosage: 37.5VA PER DAY
     Route: 048
     Dates: start: 20051206
  2. XANAX [Concomitant]
  3. ZOCOR [Concomitant]
  4. ZYPREXA [Concomitant]

REACTIONS (1)
  - DRUG INEFFECTIVE [None]
